FAERS Safety Report 6308975-0 (Version None)
Quarter: 2009Q3

REPORT INFORMATION
  Report Type: 
  Country: None (occurrence: None)
  Receive Date: 20090813
  Receipt Date: 20090804
  Transmission Date: 20100115
  Serious: Yes (Other)
  Sender: FDA-Public Use
  Company Number: BR-JNJCH-2009021054

PATIENT
  Age: 69 Year
  Sex: Female
  Weight: 35 kg

DRUGS (2)
  1. COOL CITRUS LISTERINE MOUTHWASH [Suspect]
     Indication: DENTAL DISORDER PROPHYLAXIS
     Dosage: TEXT:TWICE PER DAY
     Route: 048
  2. VITAMIN B COMPLEX CAP [Concomitant]
     Indication: VITAMIN SUPPLEMENTATION
     Dosage: TEXT:UNKNOWN
     Route: 065

REACTIONS (1)
  - ASPHYXIA [None]
